FAERS Safety Report 8955029 (Version 1)
Quarter: 2012Q4

REPORT INFORMATION
  Report Type: Report from Study
  Country: CA (occurrence: CA)
  Receive Date: 20121210
  Receipt Date: 20121210
  Transmission Date: 20130627
  Serious: Yes (Hospitalization)
  Sender: FDA-Public Use
  Company Number: CA-JNJFOC-20121102623

PATIENT
  Age: 50 Year
  Sex: Female
  Weight: 55 kg

DRUGS (4)
  1. REMICADE [Suspect]
     Indication: CROHN^S DISEASE
     Dosage: loading doses
     Route: 042
     Dates: start: 20120730
  2. REMICADE [Suspect]
     Indication: CROHN^S DISEASE
     Dosage: loading doses
     Route: 042
     Dates: start: 20120918
  3. METHOTREXATE [Concomitant]
     Route: 065
  4. PREDNISOLONE [Concomitant]
     Route: 065

REACTIONS (2)
  - Hospitalisation [Unknown]
  - Rash [Unknown]
